FAERS Safety Report 4499192-8 (Version None)
Quarter: 2004Q4

REPORT INFORMATION
  Report Type: 
  Country: None (occurrence: None)
  Receive Date: 20041111
  Receipt Date: 20041101
  Transmission Date: 20050328
  Serious: Yes (Hospitalization, Other)
  Sender: FDA-Public Use
  Company Number: PHFR2004GB04070

PATIENT
  Age: 70 Year
  Sex: Male

DRUGS (13)
  1. DICLOFENAC [Suspect]
     Indication: RHEUMATOID ARTHRITIS
     Dosage: 75 MG, BID
     Route: 048
     Dates: start: 19900101, end: 20040901
  2. WARFARIN SODIUM [Suspect]
     Route: 065
     Dates: start: 19980101
  3. ASPIRIN [Suspect]
     Indication: MYOCARDIAL ISCHAEMIA
     Dosage: 75 MG, QD
     Route: 048
     Dates: start: 19970101, end: 20040901
  4. FERROUS SULFATE TAB [Concomitant]
     Dosage: 200 MG, TID
     Route: 048
  5. FOLIC ACID [Concomitant]
     Dosage: 5MG/DAY
     Route: 048
  6. ATORVASTATIN CALCIUM [Concomitant]
     Dosage: 10MG/NOCTE
     Route: 048
  7. RAMIPRIL [Concomitant]
     Dosage: 5 MG, BID
     Route: 048
  8. FOSAMAX [Concomitant]
     Dosage: 70MG/DAY
     Route: 048
  9. CALCICHEW D3 [Concomitant]
     Route: 048
  10. TRAMADOL [Concomitant]
     Dosage: 200 MG, BID
     Route: 048
  11. METHOTREXATE [Concomitant]
     Dosage: 17.5MG/DAY
     Route: 048
  12. PANTOPRAZOLE [Concomitant]
     Dosage: 20 MG, QD
     Route: 048
  13. PREDNISOLONE [Concomitant]
     Dosage: 7.5MG/DAY
     Route: 048
     Dates: start: 19950101

REACTIONS (5)
  - BLOOD CREATINE ABNORMAL [None]
  - BLOOD UREA INCREASED [None]
  - GASTRIC ULCER [None]
  - HAEMATEMESIS [None]
  - HAEMOGLOBIN DECREASED [None]
